FAERS Safety Report 6175692-X (Version None)
Quarter: 2009Q2

REPORT INFORMATION
  Report Type: 
  Country: None (occurrence: None)
  Receive Date: 20090501
  Receipt Date: 20090301
  Transmission Date: 20091009
  Serious: No
  Sender: FDA-Public Use
  Company Number: TR-JNJFOC-20090406969

PATIENT
  Sex: Female

DRUGS (7)
  1. DURAGESIC-100 [Suspect]
     Route: 062
  2. DURAGESIC-100 [Suspect]
     Route: 062
  3. DURAGESIC-100 [Suspect]
     Indication: PAIN
     Route: 062
  4. PARACETAMOL [Concomitant]
  5. TRAMADOL HCL [Concomitant]
  6. MIRTAZAPINE [Concomitant]
  7. CODEINE [Concomitant]

REACTIONS (1)
  - RECTAL TENESMUS [None]
